FAERS Safety Report 5041431-9 (Version None)
Quarter: 2006Q2

REPORT INFORMATION
  Report Type: 
  Country: None (occurrence: None)
  Receive Date: 20060626
  Receipt Date: 20060613
  Transmission Date: 20061013
  Serious: Yes (Life-Threatening, Hospitalization, Disabling, Other)
  Sender: FDA-Public Use
  Company Number: 200612026BCC

PATIENT
  Age: 46 Year
  Sex: Female
  Weight: 90.7194 kg

DRUGS (2)
  1. ALEVE [Suspect]
     Indication: ASTHENIA
     Dosage: 440 MG, ONCE, ORAL
     Route: 048
     Dates: start: 20031030
  2. ALEVE [Suspect]
     Indication: FATIGUE
     Dosage: 440 MG, ONCE, ORAL
     Route: 048
     Dates: start: 20031030

REACTIONS (8)
  - ANAPHYLACTIC SHOCK [None]
  - CHEST PAIN [None]
  - ELECTROCARDIOGRAM T WAVE INVERSION [None]
  - HYPERGLYCAEMIA [None]
  - HYPERLIPIDAEMIA [None]
  - HYPERSENSITIVITY [None]
  - REFUSAL OF TREATMENT BY PATIENT [None]
  - SUPRAVENTRICULAR EXTRASYSTOLES [None]
